FAERS Safety Report 14492178 (Version 3)
Quarter: 2024Q3

REPORT INFORMATION
  Report Type: Report from Study
  Country: UG (occurrence: UG)
  Receive Date: 20180206
  Receipt Date: 20240923
  Transmission Date: 20241017
  Serious: Yes (Congenital Anomaly)
  Sender: MYLAN
  Company Number: UG-MYLANLABS-2018M1007722

PATIENT
  Sex: Male
  Weight: 2.5 kg

DRUGS (6)
  1. TENOFOVIR [Suspect]
     Active Substance: TENOFOVIR
     Indication: Product used for unknown indication
     Dosage: 300 MG, QD
     Route: 064
     Dates: start: 20171206
  2. EFAVIRENZ [Suspect]
     Active Substance: EFAVIRENZ
     Indication: Product used for unknown indication
     Dosage: 600 MG, QD
     Route: 064
     Dates: start: 20171206
  3. LAMIVUDINE [Suspect]
     Active Substance: LAMIVUDINE
     Indication: Product used for unknown indication
     Dosage: 300 MG, QD
     Route: 064
     Dates: start: 20141206
  4. FOLATE Supplement [Concomitant]
     Indication: Product used for unknown indication
     Dosage: UNK
     Route: 065
  5. SULFAMETHOXAZOLE\TRIMETHOPRIM [Concomitant]
     Active Substance: SULFAMETHOXAZOLE\TRIMETHOPRIM
     Indication: Product used for unknown indication
     Dosage: UNK
     Route: 065
  6. SECNIDAZOLE [Concomitant]
     Active Substance: SECNIDAZOLE
     Indication: Product used for unknown indication
     Dosage: UNK
     Route: 065

REACTIONS (8)
  - Developmental hip dysplasia [Unknown]
  - Talipes [Unknown]
  - Congenital musculoskeletal disorder of skull [Unknown]
  - Congenital knee dislocation [Unknown]
  - Wrist deformity [Unknown]
  - Joint stiffness [Unknown]
  - Micrognathia [Unknown]
  - Foetal exposure during pregnancy [Unknown]
